FAERS Safety Report 6474322-7 (Version None)
Quarter: 2009Q4

REPORT INFORMATION
  Report Type: 
  Country: None (occurrence: None)
  Receive Date: 20091204
  Receipt Date: 20091125
  Transmission Date: 20100525
  Serious: Yes (Other)
  Sender: FDA-Public Use
  Company Number: GXKR2008GB07136

PATIENT
  Age: 80 Year
  Sex: Female

DRUGS (18)
  1. CEFUROXIME (NGX) [Suspect]
     Indication: CATARACT OPERATION
     Dosage: 125 MG, UNK
     Route: 065
     Dates: start: 20080429, end: 20080429
  2. ADRENALINE [Suspect]
     Indication: CATARACT OPERATION
     Dosage: UNK
     Route: 065
     Dates: start: 20080429, end: 20080429
  3. HYALURONATE SODIUM [Suspect]
     Indication: CATARACT OPERATION
     Dosage: UNK
     Route: 065
     Dates: start: 20080429, end: 20080429
  4. IOCARE [Suspect]
     Indication: CATARACT OPERATION
     Dosage: UNK
     Route: 065
     Dates: start: 20080429, end: 20080429
  5. ACETYLSALICYLIC ACID [Concomitant]
     Dosage: 75 MG, UNK
     Route: 048
  6. CANDESARTAN CILEXETIL [Concomitant]
     Dosage: 8 MG, QD
     Route: 048
  7. CITALOPRAM HYDROBROMIDE [Concomitant]
     Dosage: 40 MG, QD
     Route: 048
  8. CYCLOPENTOLATE HCL [Concomitant]
     Indication: CYCLOPLEGIA
     Dosage: UNK
     Route: 047
     Dates: start: 20080429, end: 20080429
  9. FEXOFENADINE [Concomitant]
     Dosage: 180 MG, QD
     Route: 048
  10. FUROSEMIDE [Concomitant]
     Dosage: 20 MG, QD
     Route: 048
  11. HYDROXYZINE [Concomitant]
     Dosage: 50 MG, QD
     Route: 048
  12. ISOSORBIDE MONONITRATE [Concomitant]
     Dosage: 10 MG, UNK
     Route: 048
  13. LEVOTHYROXINE SODIUM [Concomitant]
     Dosage: 100 UG, UNK
     Route: 048
  14. MAXITROL [Concomitant]
     Indication: MEDICATION DILUTION
     Dosage: UNK
     Route: 047
     Dates: start: 20080429
  15. PHENYLEPHRINE [Concomitant]
     Indication: MYDRIASIS
     Dosage: UNK
     Route: 047
     Dates: start: 20080429, end: 20080429
  16. POVIDONE IODINE [Concomitant]
     Dosage: UNK
     Route: 061
     Dates: start: 20080429, end: 20080429
  17. VOLTAREN [Concomitant]
     Dosage: UNK
     Route: 047
     Dates: start: 20080429, end: 20080429
  18. WATER [Concomitant]
     Route: 065

REACTIONS (2)
  - RETINAL INJURY [None]
  - VISUAL ACUITY REDUCED [None]
